FAERS Safety Report 8302111-7 (Version None)
Quarter: 2012Q2

REPORT INFORMATION
  Report Type: 
  Country: None (occurrence: None)
  Receive Date: 20120418
  Receipt Date: 20120328
  Transmission Date: 20120825
  Serious: Yes (Hospitalization, Other)
  Sender: FDA-Public Use
  Company Number: 2012PROUSA01152

PATIENT
  Age: 73 Year
  Sex: Male
  Weight: 72.5 kg

DRUGS (7)
  1. PROVENGE [Suspect]
  2. CARDIZEM [Concomitant]
  3. PROVENGE [Suspect]
     Indication: PROSTATE CANCER METASTATIC
     Dosage: 250 ML, SINGLE, INTRAVENOUS
     Route: 042
     Dates: start: 20120210, end: 20120210
  4. PROVENGE [Suspect]
     Indication: PROSTATE CANCER METASTATIC
     Dosage: 250 ML, SINGLE, INTRAVENOUS
     Route: 042
     Dates: start: 20120224, end: 20120224
  5. PERCOCET [Concomitant]
  6. PRILOSEC [Concomitant]
  7. METOLAZONE [Concomitant]

REACTIONS (16)
  - FATIGUE [None]
  - LETHARGY [None]
  - HAEMOGLOBIN DECREASED [None]
  - DYSPNOEA [None]
  - DEPRESSION [None]
  - DECREASED APPETITE [None]
  - METASTASES TO BONE [None]
  - BLOOD PRESSURE DECREASED [None]
  - DISEASE PROGRESSION [None]
  - ASTHENIA [None]
  - PROSTATE CANCER [None]
  - WEIGHT DECREASED [None]
  - GENERAL PHYSICAL HEALTH DETERIORATION [None]
  - OEDEMA PERIPHERAL [None]
  - DYSPNOEA EXERTIONAL [None]
  - REFUSAL OF TREATMENT BY PATIENT [None]
